FAERS Safety Report 17009509 (Version 1)
Quarter: 2019Q4

REPORT INFORMATION
  Report Type: Spontaneous
  Country: DE (occurrence: DE)
  Receive Date: 20191108
  Receipt Date: 20191108
  Transmission Date: 20200122
  Serious: Yes (Other)
  Sender: FDA-Public Use
  Company Number: DE-ASTRAZENECA-2019SF55161

PATIENT
  Age: 78 Year
  Sex: Female

DRUGS (20)
  1. CLOPIDOGREL [Suspect]
     Active Substance: CLOPIDOGREL BISULFATE
     Indication: PRODUCT USED FOR UNKNOWN INDICATION
     Route: 048
  2. METFORMIN [Suspect]
     Active Substance: METFORMIN HYDROCHLORIDE
     Route: 048
     Dates: start: 20191019, end: 20191019
  3. SIMVASTATIN. [Suspect]
     Active Substance: SIMVASTATIN
     Dosage: ONCE/SINGLE ADMINISTRATION
     Route: 048
     Dates: start: 20191019, end: 20191019
  4. VENLAFAXIN [Suspect]
     Active Substance: VENLAFAXINE HYDROCHLORIDE
     Dosage: ONCE/SINGLE ADMINISTRATION
     Route: 048
     Dates: start: 20191019, end: 20191019
  5. LERCANIDIPIN [Suspect]
     Active Substance: LERCANIDIPINE
     Dosage: ONCE/SINGLE ADMINISTRATION
     Route: 048
     Dates: start: 20191019, end: 20191019
  6. CLOPIDOGREL [Suspect]
     Active Substance: CLOPIDOGREL BISULFATE
     Dosage: ONCE/SINGLE ADMINISTRATION
     Route: 048
     Dates: start: 20191019, end: 20191019
  7. TOREM [Suspect]
     Active Substance: TORSEMIDE
     Indication: PRODUCT USED FOR UNKNOWN INDICATION
     Route: 048
  8. DAPAGLIFLOZIN. [Suspect]
     Active Substance: DAPAGLIFLOZIN
     Dosage: ONCE/SINGLE ADMINISTRATION
     Route: 048
     Dates: start: 20191019, end: 20191019
  9. VENLAFAXIN [Suspect]
     Active Substance: VENLAFAXINE HYDROCHLORIDE
     Indication: PRODUCT USED FOR UNKNOWN INDICATION
     Route: 048
  10. DAPAGLIFLOZIN. [Suspect]
     Active Substance: DAPAGLIFLOZIN
     Indication: PRODUCT USED FOR UNKNOWN INDICATION
     Route: 048
  11. METOPROLOL SUCCINAT BETA [Suspect]
     Active Substance: METOPROLOL SUCCINATE
     Indication: PRODUCT USED FOR UNKNOWN INDICATION
     Route: 048
  12. QUETIAPIN [Suspect]
     Active Substance: QUETIAPINE
     Dosage: ONCE/SINGLE ADMINISTRATION
     Route: 048
     Dates: start: 20191019, end: 20191019
  13. METFORMIN [Suspect]
     Active Substance: METFORMIN HYDROCHLORIDE
     Indication: PRODUCT USED FOR UNKNOWN INDICATION
     Route: 048
  14. LERCANIDIPIN [Suspect]
     Active Substance: LERCANIDIPINE
     Indication: PRODUCT USED FOR UNKNOWN INDICATION
     Route: 048
  15. SIMVASTATIN. [Suspect]
     Active Substance: SIMVASTATIN
     Indication: PRODUCT USED FOR UNKNOWN INDICATION
     Route: 048
  16. QUETIAPIN [Suspect]
     Active Substance: QUETIAPINE
     Indication: PRODUCT USED FOR UNKNOWN INDICATION
     Route: 048
  17. TOREM [Suspect]
     Active Substance: TORSEMIDE
     Dosage: 1.0DF ONCE/SINGLE ADMINISTRATION
     Route: 048
     Dates: start: 20191019, end: 20191019
  18. MOVICOL [Suspect]
     Active Substance: POLYETHYLENE GLYCOL 3350\POTASSIUM CHLORIDE\SODIUM BICARBONATE\SODIUM CHLORIDE
     Indication: PRODUCT USED FOR UNKNOWN INDICATION
     Route: 065
  19. METOPROLOL SUCCINAT BETA [Suspect]
     Active Substance: METOPROLOL SUCCINATE
     Dosage: 47.5MG ONCE/SINGLE ADMINISTRATION
     Route: 048
     Dates: start: 20191019, end: 20191019
  20. MOVICOL [Suspect]
     Active Substance: POLYETHYLENE GLYCOL 3350\POTASSIUM CHLORIDE\SODIUM BICARBONATE\SODIUM CHLORIDE
     Route: 065
     Dates: start: 20191019, end: 20191019

REACTIONS (2)
  - Intentional overdose [Unknown]
  - Suicide attempt [Unknown]

NARRATIVE: CASE EVENT DATE: 20191019
